FAERS Safety Report 10022185 (Version 2)
Quarter: 2014Q1

REPORT INFORMATION
  Report Type: Spontaneous
  Country: JP (occurrence: JP)
  Receive Date: 20140319
  Receipt Date: 20140331
  Transmission Date: 20141002
  Serious: Yes (Other)
  Sender: FDA-Public Use
  Company Number: JP-GLAXOSMITHKLINE-B0976870A

PATIENT
  Sex: Male

DRUGS (9)
  1. LAMICTAL [Suspect]
     Indication: BIPOLAR DISORDER
     Route: 048
     Dates: start: 2013, end: 20131209
  2. LAMICTAL [Suspect]
     Indication: BIPOLAR DISORDER
     Dosage: 75MG TWICE PER DAY
     Route: 048
     Dates: start: 20131210, end: 20140113
  3. LAMICTAL [Suspect]
     Indication: BIPOLAR DISORDER
     Dosage: 125MG PER DAY
     Route: 048
     Dates: start: 20140114
  4. ZYPREXA [Concomitant]
     Indication: ANXIETY
     Dosage: 10MG PER DAY
     Route: 065
     Dates: start: 201305
  5. RIVOTRIL [Concomitant]
     Indication: TREMOR
     Dosage: .5MG TWICE PER DAY
     Route: 048
     Dates: start: 201306
  6. ETHYL LOFLAZEPATE [Concomitant]
     Indication: ANXIETY
     Dosage: 1MG PER DAY
     Route: 048
     Dates: start: 201308
  7. SILECE [Concomitant]
     Indication: INSOMNIA
     Dosage: 2MG PER DAY
     Route: 048
     Dates: start: 201304
  8. ADALAT L [Concomitant]
     Indication: HYPERTENSION
     Dosage: 20MG TWICE PER DAY
     Route: 048
  9. BLOPRESS [Concomitant]
     Indication: HYPERTENSION
     Dosage: 8MG PER DAY
     Route: 048

REACTIONS (7)
  - Dizziness [Recovering/Resolving]
  - Fall [Recovering/Resolving]
  - Rib fracture [Unknown]
  - Muscular weakness [Unknown]
  - Listless [Unknown]
  - Restlessness [Unknown]
  - Loss of control of legs [Unknown]
